FAERS Safety Report 9333065 (Version 2)
Quarter: 2013Q3

REPORT INFORMATION
  Report Type: Spontaneous
  Country: JP (occurrence: JP)
  Receive Date: 20130606
  Receipt Date: 20130718
  Transmission Date: 20140515
  Serious: Yes (Other)
  Sender: FDA-Public Use
  Company Number: JP-PFIZER INC-2013141761

PATIENT
  Age: 63 Year
  Sex: Male

DRUGS (8)
  1. LYRICA [Suspect]
     Indication: POST HERPETIC NEURALGIA
     Dosage: 75 MG, 1X/DAY
     Route: 048
     Dates: start: 20130319, end: 20130507
  2. ACTOS [Concomitant]
     Dosage: 15 MG, 1X/DAY
     Route: 048
     Dates: start: 20111101
  3. EQUA [Concomitant]
     Dosage: 50 MG, 2X/DAY
     Route: 048
     Dates: start: 20120110
  4. PLETAAL [Concomitant]
     Dosage: 100 MG, 2X/DAY
     Route: 048
     Dates: start: 20111004
  5. AMARYL [Concomitant]
     Dosage: 1 MG, 3X/DAY
     Route: 048
     Dates: start: 20111004
  6. LIPITOR [Concomitant]
     Dosage: 10 MG, 1X/DAY
     Route: 048
     Dates: start: 20120110
  7. DIOVAN [Concomitant]
     Dosage: 10 MG, 1X/DAY
     Route: 048
     Dates: start: 20120403
  8. BASEN [Concomitant]
     Dosage: 0.3 MG, 3X/DAY
     Route: 048
     Dates: start: 20111004

REACTIONS (5)
  - Shared psychotic disorder [Not Recovered/Not Resolved]
  - Delusional disorder, persecutory type [Not Recovered/Not Resolved]
  - Drug dependence [Not Recovered/Not Resolved]
  - Communication disorder [Not Recovered/Not Resolved]
  - Irritability [Not Recovered/Not Resolved]
